FAERS Safety Report 8508092-5 (Version None)
Quarter: 2012Q2

REPORT INFORMATION
  Report Type: 
  Country: None (occurrence: None)
  Receive Date: 20120405
  Receipt Date: 20090909
  Transmission Date: 20120825
  Serious: Yes (Life-Threatening)
  Sender: FDA-Public Use
  Company Number: PHEH2009US10618

PATIENT
  Age: 86 Year
  Sex: Female

DRUGS (1)
  1. RECLAST [Suspect]
     Dosage: INFUSION
     Dates: start: 20090902, end: 20090902

REACTIONS (6)
  - BONE PAIN [None]
  - ARTHRALGIA [None]
  - DIARRHOEA [None]
  - INFLUENZA LIKE ILLNESS [None]
  - MALAISE [None]
  - PARAESTHESIA [None]
